FAERS Safety Report 24368647 (Version 1)
Quarter: 2024Q3

REPORT INFORMATION
  Report Type: Report from Study
  Country: BR (occurrence: BR)
  Receive Date: 20240926
  Receipt Date: 20240926
  Transmission Date: 20241016
  Serious: Yes (Other)
  Sender: BIOGEN
  Company Number: BR-BIOGEN-2024BI01284117

PATIENT
  Sex: Female
  Weight: 105 kg

DRUGS (1)
  1. TYSABRI [Suspect]
     Active Substance: NATALIZUMAB
     Indication: Multiple sclerosis
     Route: 050
     Dates: start: 202402

REACTIONS (6)
  - Epilepsy [Unknown]
  - Cognitive disorder [Unknown]
  - Affective disorder [Unknown]
  - Sensory disturbance [Unknown]
  - Headache [Unknown]
  - Fatigue [Unknown]
